FAERS Safety Report 7386687-2 (Version None)
Quarter: 2011Q1

REPORT INFORMATION
  Report Type: 
  Country: None (occurrence: None)
  Receive Date: 20110329
  Receipt Date: 20110329
  Transmission Date: 20110831
  Serious: Yes (Life-Threatening, Hospitalization)
  Sender: FDA-Public Use
  Company Number: None

PATIENT
  Age: 56 Year
  Sex: Male
  Weight: 99.8 kg

DRUGS (2)
  1. HALOPERIDOL [Suspect]
     Dosage: 20 MG BID PO
     Route: 048
     Dates: start: 20091209, end: 20101206
  2. RISPERIDONE [Suspect]
     Indication: BIPOLAR I DISORDER
     Dosage: 3 MG BID PO
     Route: 048
     Dates: start: 20101001, end: 20101206

REACTIONS (2)
  - NEUROLEPTIC MALIGNANT SYNDROME [None]
  - PSYCHOTIC DISORDER [None]
